FAERS Safety Report 7209398-2 (Version None)
Quarter: 2011Q1

REPORT INFORMATION
  Report Type: 
  Country: None (occurrence: None)
  Receive Date: 20110104
  Receipt Date: 20101223
  Transmission Date: 20110831
  Serious: Yes (Other)
  Sender: FDA-Public Use
  Company Number: BR-US-EMD SERONO, INC.-7033919

PATIENT
  Sex: Male

DRUGS (3)
  1. CAPTOPRIL [Concomitant]
  2. REBIF [Suspect]
     Indication: RELAPSING-REMITTING MULTIPLE SCLEROSIS
     Dates: start: 20040101
  3. GLIBENCLAMIDE [Concomitant]

REACTIONS (3)
  - HYPERTENSION [None]
  - PYREXIA [None]
  - DIABETES MELLITUS [None]
